FAERS Safety Report 19290316 (Version 3)
Quarter: 2022Q1

REPORT INFORMATION
  Report Type: Report from Study
  Country: US (occurrence: US)
  Receive Date: 20210522
  Receipt Date: 20220321
  Transmission Date: 20220424
  Serious: Yes (Other)
  Sender: FDA-Public Use
  Company Number: US-TAKEDA-US202026522

PATIENT
  Sex: Female

DRUGS (1)
  1. HUMAN IMMUNOGLOBULIN G\HYALURONIDASE RECOMBINANT HUMAN [Suspect]
     Active Substance: HUMAN IMMUNOGLOBULIN G\HYALURONIDASE RECOMBINANT HUMAN
     Indication: Primary immunodeficiency syndrome
     Route: 065

REACTIONS (11)
  - Parathyroid tumour [Unknown]
  - Cataract operation [Unknown]
  - Neuropathy peripheral [Unknown]
  - Amyotrophic lateral sclerosis [Unknown]
  - Pneumonia [Unknown]
  - Gait disturbance [Unknown]
  - Dysphonia [Unknown]
  - Balance disorder [Unknown]
  - Osteoporosis [Unknown]
  - Blood parathyroid hormone increased [Unknown]
  - Inappropriate schedule of product administration [Unknown]
